FAERS Safety Report 19714809 (Version 1)
Quarter: 2021Q3

REPORT INFORMATION
  Report Type: Spontaneous
  Country: US (occurrence: US)
  Receive Date: 20210817
  Receipt Date: 20210817
  Transmission Date: 20211014
  Serious: No
  Sender: FDA-Public Use
  Company Number: None

PATIENT
  Sex: Female
  Weight: 77.11 kg

DRUGS (14)
  1. CAPECITABINE 500 MG TABLET [Suspect]
     Active Substance: CAPECITABINE
     Indication: RECTAL CANCER
     Route: 048
  2. LORATADINE. [Concomitant]
     Active Substance: LORATADINE
  3. ATENOLOL. [Concomitant]
     Active Substance: ATENOLOL
  4. ONDANSETRON [Concomitant]
     Active Substance: ONDANSETRON
  5. AMLODIPINE [Concomitant]
     Active Substance: AMLODIPINE BESYLATE
  6. DOCUSATE [Concomitant]
     Active Substance: DOCUSATE
  7. POTASSIUM CHLORIDE. [Concomitant]
     Active Substance: POTASSIUM CHLORIDE
  8. MAGNESIUM [Concomitant]
     Active Substance: MAGNESIUM
  9. LOPERAMIDE [Concomitant]
     Active Substance: LOPERAMIDE
  10. LORAZEPAM. [Concomitant]
     Active Substance: LORAZEPAM
  11. FAMOTIDINE. [Concomitant]
     Active Substance: FAMOTIDINE
  12. LOSARTAN. [Concomitant]
     Active Substance: LOSARTAN
  13. MELOXICAM. [Concomitant]
     Active Substance: MELOXICAM
  14. FERROUS SULFATE. [Concomitant]
     Active Substance: FERROUS SULFATE

REACTIONS (1)
  - Liver disorder [None]
